FAERS Safety Report 7316925-3 (Version None)
Quarter: 2011Q1

REPORT INFORMATION
  Report Type: 
  Country: None (occurrence: None)
  Receive Date: 20110226
  Receipt Date: 20100902
  Transmission Date: 20110831
  Serious: No
  Sender: FDA-Public Use
  Company Number: US-ALLERGAN-1011383US

PATIENT
  Age: 32 Year
  Sex: Female

DRUGS (2)
  1. VIVITE DAILY FIRMING LOTION [Concomitant]
     Indication: PRODUCT USED FOR UNKNOWN INDICATION
  2. BOTOX COSMETIC [Suspect]
     Indication: SKIN WRINKLING
     Dosage: 40 UNITS, SINGLE
     Route: 030
     Dates: start: 20100820, end: 20100820

REACTIONS (4)
  - SWELLING FACE [None]
  - ERYTHEMA [None]
  - PRURITUS [None]
  - URTICARIA [None]
